FAERS Safety Report 4420305-8 (Version None)
Quarter: 2004Q3

REPORT INFORMATION
  Report Type: 
  Country: None (occurrence: None)
  Receive Date: 20040809
  Receipt Date: 20040402
  Transmission Date: 20050211
  Serious: No
  Sender: FDA-Public Use
  Company Number: US-GLAXOSMITHKLINE-A0505670A

PATIENT
  Age: 51 Year
  Sex: Female

DRUGS (4)
  1. PAXIL [Suspect]
     Dosage: 10MG PER DAY
     Route: 048
     Dates: start: 20040101
  2. LEVOXYL [Concomitant]
  3. PRINIVIL [Concomitant]
  4. NEXIUM [Concomitant]

REACTIONS (1)
  - HYPERHIDROSIS [None]
